FAERS Safety Report 18436481 (Version 1)
Quarter: 2020Q4

REPORT INFORMATION
  Report Type: Spontaneous
  Country: CN (occurrence: CN)
  Receive Date: 20201028
  Receipt Date: 20201028
  Transmission Date: 20210114
  Serious: Yes (Hospitalization, Other)
  Sender: FDA-Public Use
  Company Number: CN-PFIZER INC-2020413544

PATIENT
  Age: 39 Year
  Sex: Male
  Weight: 90 kg

DRUGS (3)
  1. INVEGA SUSTENNA [Suspect]
     Active Substance: PALIPERIDONE PALMITATE
     Indication: SCHIZOPHRENIA
     Dosage: 100 MG, 1X/DAY
     Route: 030
     Dates: start: 20200821, end: 20200821
  2. EFEXOR XR [Suspect]
     Active Substance: VENLAFAXINE HYDROCHLORIDE
     Indication: SCHIZOPHRENIA
     Dosage: 225 MG, 1X/DAY
     Route: 048
     Dates: start: 20200821, end: 20200911
  3. SHU SI [Suspect]
     Active Substance: QUETIAPINE FUMARATE
     Indication: SCHIZOPHRENIA
     Dosage: 200 MG, 2X/DAY
     Route: 048
     Dates: start: 20200825, end: 20200911

REACTIONS (6)
  - Bilirubin conjugated increased [Recovering/Resolving]
  - Alanine aminotransferase increased [Recovering/Resolving]
  - Aspartate aminotransferase increased [Recovering/Resolving]
  - Blood bilirubin increased [Recovering/Resolving]
  - Condition aggravated [Unknown]
  - Total bile acids increased [Recovering/Resolving]

NARRATIVE: CASE EVENT DATE: 2020
